FAERS Safety Report 18673829 (Version 1)
Quarter: 2020Q4

REPORT INFORMATION
  Report Type: Spontaneous
  Country: US (occurrence: US)
  Receive Date: 20201229
  Receipt Date: 20201229
  Transmission Date: 20210114
  Serious: No
  Sender: FDA-Public Use
  Company Number: US-GILEAD-2020-0510039

PATIENT
  Sex: Female

DRUGS (6)
  1. SEROQUEL [Concomitant]
     Active Substance: QUETIAPINE FUMARATE
  2. KEFLEX [Concomitant]
     Active Substance: CEPHALEXIN
  3. PEPCID [Concomitant]
     Active Substance: FAMOTIDINE
  4. SOFOSBUVIR;VELPATASVIR [Suspect]
     Active Substance: SOFOSBUVIR\VELPATASVIR
     Indication: CHRONIC HEPATITIS C
     Dosage: 1 DOSAGE FORM, QD
     Route: 048
     Dates: start: 202011
  5. VISTARIL [Concomitant]
     Active Substance: HYDROXYZINE PAMOATE
  6. VIVITROL [Concomitant]
     Active Substance: NALTREXONE

REACTIONS (1)
  - Product dose omission issue [Recovered/Resolved]
